FAERS Safety Report 5845227-7 (Version None)
Quarter: 2008Q3

REPORT INFORMATION
  Report Type: 
  Country: None (occurrence: None)
  Receive Date: 20080814
  Receipt Date: 20080813
  Transmission Date: 20090109
  Serious: Yes (Hospitalization)
  Sender: FDA-Public Use
  Company Number: B0506211A

PATIENT
  Age: 9 Year
  Sex: Male

DRUGS (7)
  1. CARVEDILOL [Suspect]
     Indication: DRUG USE FOR UNKNOWN INDICATION
     Route: 048
     Dates: start: 20041001, end: 20060701
  2. LASIX [Suspect]
     Indication: DRUG USE FOR UNKNOWN INDICATION
     Dosage: 20MG PER DAY
     Route: 048
     Dates: start: 20040401
  3. SECTRAL [Suspect]
     Indication: DRUG USE FOR UNKNOWN INDICATION
     Route: 048
     Dates: start: 20060701
  4. LOPRIL [Suspect]
     Indication: DRUG USE FOR UNKNOWN INDICATION
     Dosage: 25MG PER DAY
     Route: 048
     Dates: start: 20030401, end: 20070601
  5. CORTANCYL [Suspect]
     Indication: DRUG USE FOR UNKNOWN INDICATION
     Dosage: 20MG PER DAY
     Route: 048
     Dates: start: 20020301, end: 20030401
  6. ADALAT [Suspect]
     Indication: HYPERTENSION
     Dosage: 20MG PER DAY
     Route: 048
     Dates: start: 20021001, end: 20071201
  7. IMUREL [Suspect]
     Indication: DRUG USE FOR UNKNOWN INDICATION
     Dosage: 25MG PER DAY
     Route: 048
     Dates: start: 20030401

REACTIONS (6)
  - ARTHRALGIA [None]
  - ARTHRITIS [None]
  - BONE DISORDER [None]
  - OSTEOCHONDROSIS [None]
  - OSTEONECROSIS [None]
  - PSYCHOGENIC ERECTILE DYSFUNCTION [None]
